FAERS Safety Report 9850305 (Version 1)
Quarter: 2014Q1

REPORT INFORMATION
  Report Type: Spontaneous
  Country: BE (occurrence: BE)
  Receive Date: 20140128
  Receipt Date: 20140128
  Transmission Date: 20141002
  Serious: Yes (Death)
  Sender: FDA-Public Use
  Company Number: BE-ABBVIE-14P-013-1194978-00

PATIENT
  Age: 44 Year
  Sex: Male

DRUGS (3)
  1. RITONAVIR [Suspect]
     Indication: HIV INFECTION
  2. ABACAVIR W/LAMIVUDINE/ZIDOVUDINE [Suspect]
     Indication: HIV INFECTION
  3. SAQUINAVIR [Suspect]
     Indication: HIV INFECTION

REACTIONS (9)
  - Immune reconstitution inflammatory syndrome [Fatal]
  - Pulmonary oedema [Fatal]
  - Brain oedema [Fatal]
  - Pneumonia necrotising [Fatal]
  - Bronchopulmonary aspergillosis [Fatal]
  - Pneumonia cytomegaloviral [Fatal]
  - Bacterial infection [Fatal]
  - Progressive multifocal leukoencephalopathy [Fatal]
  - Bronchopneumonia [Fatal]
